FAERS Safety Report 10246708 (Version 2)
Quarter: 2014Q3

REPORT INFORMATION
  Report Type: Spontaneous
  Country: BR (occurrence: BR)
  Receive Date: 20140619
  Receipt Date: 20140702
  Transmission Date: 20150326
  Serious: Yes (Other)
  Sender: FDA-Public Use
  Company Number: BR-PFIZER INC-2014165721

PATIENT
  Sex: Female

DRUGS (1)
  1. FRONTAL [Suspect]
     Active Substance: ALPRAZOLAM
     Dosage: UNK
     Dates: start: 201402, end: 20140603

REACTIONS (16)
  - Hallucination [Unknown]
  - Flatulence [Unknown]
  - Daydreaming [Not Recovered/Not Resolved]
  - Mouth injury [Not Recovered/Not Resolved]
  - Memory impairment [Unknown]
  - Depressed mood [Not Recovered/Not Resolved]
  - Irritability [Unknown]
  - Tremor [Unknown]
  - Crying [Unknown]
  - Abdominal discomfort [Unknown]
  - Insomnia [Unknown]
  - Nervousness [Unknown]
  - Peripheral coldness [Unknown]
  - Oral discomfort [Unknown]
  - Psychiatric symptom [Unknown]
  - Feeling abnormal [Unknown]

NARRATIVE: CASE EVENT DATE: 2014
